FAERS Safety Report 8593682-4 (Version None)
Quarter: 2012Q3

REPORT INFORMATION
  Report Type: 
  Country: None (occurrence: None)
  Receive Date: 20120803
  Receipt Date: 20120803
  Transmission Date: 20120928
  Serious: Yes (Other)
  Sender: FDA-Public Use
  Company Number: None

PATIENT
  Sex: Female
  Weight: 78.6 kg

DRUGS (2)
  1. LAMICTAL [Suspect]
     Dosage: 100 MG TAKE 4QAM AND 3 QPM
  2. TOPIRAMATE [Suspect]
     Dosage: 100 MG TAKE 2 BID

REACTIONS (4)
  - CONVULSION [None]
  - CONDITION AGGRAVATED [None]
  - TOXICITY TO VARIOUS AGENTS [None]
  - PRODUCT SUBSTITUTION ISSUE [None]
